FAERS Safety Report 5092587-3 (Version None)
Quarter: 2006Q3

REPORT INFORMATION
  Report Type: 
  Country: None (occurrence: None)
  Receive Date: 20060828
  Receipt Date: 20060814
  Transmission Date: 20061208
  Serious: Yes (Life-Threatening, Hospitalization, Disabling, Other)
  Sender: FDA-Public Use
  Company Number: 2006097680

PATIENT
  Age: 48 Year
  Sex: Female
  Weight: 61.2356 kg

DRUGS (3)
  1. GEODON [Suspect]
     Indication: DEPRESSION
     Dosage: 40 MG (40 MG, 1 IN 1 D), ORAL
     Route: 048
     Dates: start: 20060601, end: 20060101
  2. GEODON [Suspect]
     Indication: HALLUCINATION
     Dosage: 40 MG (40 MG, 1 IN 1 D), ORAL
     Route: 048
     Dates: start: 20060601, end: 20060101
  3. ALL OTHER THERAPEUTIC PRODUCTS [Concomitant]

REACTIONS (6)
  - DIARRHOEA [None]
  - DISEASE RECURRENCE [None]
  - HALLUCINATION [None]
  - IMPAIRED DRIVING ABILITY [None]
  - PAIN [None]
  - PARALYSIS [None]
